FAERS Safety Report 23273048 (Version 1)
Quarter: 2023Q4

REPORT INFORMATION
  Report Type: Other
  Country: JP (occurrence: JP)
  Receive Date: 20231207
  Receipt Date: 20231207
  Transmission Date: 20240110
  Serious: Yes (Other)
  Sender: FDA-Public Use
  Company Number: JP-Merck Healthcare KGaA-2023490899

PATIENT
  Age: 71 Year
  Sex: Male

DRUGS (1)
  1. BAVENCIO [Suspect]
     Active Substance: AVELUMAB
     Indication: Metastatic carcinoma of the bladder
     Route: 041

REACTIONS (4)
  - Ureteric obstruction [Unknown]
  - Renal impairment [Recovering/Resolving]
  - Haematuria [Unknown]
  - Anaemia [Recovering/Resolving]
